FAERS Safety Report 23830793 (Version 3)
Quarter: 2024Q3

REPORT INFORMATION
  Report Type: Spontaneous
  Country: DE (occurrence: DE)
  Receive Date: 20240508
  Receipt Date: 20240816
  Transmission Date: 20241016
  Serious: No
  Sender: TAKEDA
  Company Number: DE-TAKEDA-2024TUS041502

PATIENT
  Sex: Female

DRUGS (2)
  1. ENTYVIO [Suspect]
     Active Substance: VEDOLIZUMAB
     Indication: Product used for unknown indication
     Dosage: 108 MILLIGRAM
     Route: 058
  2. ENTYVIO [Suspect]
     Active Substance: VEDOLIZUMAB
     Indication: Product used for unknown indication
     Dosage: 108 MILLIGRAM
     Route: 058

REACTIONS (3)
  - No adverse event [Unknown]
  - Needle issue [Unknown]
  - Product dose omission issue [Unknown]
